FAERS Safety Report 24617804 (Version 1)
Quarter: 2024Q4

REPORT INFORMATION
  Report Type: Spontaneous
  Country: US (occurrence: US)
  Receive Date: 20241114
  Receipt Date: 20241114
  Transmission Date: 20250114
  Serious: No
  Sender: ABBVIE
  Company Number: US-ABBVIE-5999950

PATIENT
  Sex: Female

DRUGS (2)
  1. BOTOX COSMETIC [Suspect]
     Active Substance: ONABOTULINUMTOXINA
     Indication: Product used for unknown indication
     Dosage: TIME INTERVAL: AS NECESSARY
     Route: 065
     Dates: start: 2014, end: 2014
  2. BOTOX COSMETIC [Suspect]
     Active Substance: ONABOTULINUMTOXINA
     Indication: Product used for unknown indication
     Dosage: TIME INTERVAL: AS NECESSARY
     Route: 065
     Dates: start: 202408, end: 202408

REACTIONS (6)
  - Toxicity to various agents [Unknown]
  - Muscular weakness [Unknown]
  - Panic reaction [Unknown]
  - Brain fog [Unknown]
  - Muscle spasms [Unknown]
  - Anxiety [Unknown]

NARRATIVE: CASE EVENT DATE: 20240101
